FAERS Safety Report 17005672 (Version 4)
Quarter: 2020Q1

REPORT INFORMATION
  Report Type: Spontaneous
  Country: JP (occurrence: JP)
  Receive Date: 20191107
  Receipt Date: 20200117
  Transmission Date: 20200409
  Serious: Yes (Death, Hospitalization)
  Sender: FDA-Public Use
  Company Number: JP-ELI_LILLY_AND_COMPANY-JP201911001187

PATIENT
  Age: 61 Year
  Sex: Male
  Weight: 64 kg

DRUGS (4)
  1. DOCETAXEL. [Suspect]
     Active Substance: DOCETAXEL
     Indication: NON-SMALL CELL LUNG CANCER
     Dosage: 100 MG, CYCLICAL
     Route: 041
     Dates: start: 20191017, end: 20191017
  2. CYRAMZA [Suspect]
     Active Substance: RAMUCIRUMAB
     Indication: NON-SMALL CELL LUNG CANCER
     Dosage: 640 MG, CYCLICAL
     Route: 041
     Dates: start: 20191017, end: 20191017
  3. DEXART [Concomitant]
     Active Substance: DEXAMETHASONE SODIUM PHOSPHATE
     Dosage: UNK
     Dates: start: 20191017
  4. RESTAMIN KOWA [Concomitant]
     Dosage: UNK
     Dates: start: 20191017

REACTIONS (4)
  - Cerebral haemorrhage [Fatal]
  - Febrile neutropenia [Fatal]
  - Rhabdomyolysis [Fatal]
  - Pneumonia bacterial [Unknown]

NARRATIVE: CASE EVENT DATE: 20191025
